FAERS Safety Report 24084745 (Version 1)
Quarter: 2024Q3

REPORT INFORMATION
  Report Type: Spontaneous
  Country: US (occurrence: None)
  Receive Date: 20240712
  Receipt Date: 20240712
  Transmission Date: 20241017
  Serious: No
  Sender: Public
  Company Number: None

PATIENT
  Sex: Female
  Weight: 54 kg

DRUGS (2)
  1. CARBOPLATIN [Suspect]
     Active Substance: CARBOPLATIN
     Dates: start: 20230912
  2. PACLITAXEL [Suspect]
     Active Substance: PACLITAXEL

REACTIONS (3)
  - Pilonidal disease [None]
  - Immunodeficiency [None]
  - Treatment delayed [None]

NARRATIVE: CASE EVENT DATE: 20231012
